FAERS Safety Report 5263557-7 (Version None)
Quarter: 2007Q1

REPORT INFORMATION
  Report Type: 
  Country: None (occurrence: None)
  Receive Date: 20070312
  Receipt Date: 20070312
  Transmission Date: 20070707
  Serious: No
  Sender: FDA-Public Use
  Company Number: None

PATIENT

DRUGS (4)
  1. NIFEDIAC CC [Suspect]
     Dosage: TABLET, EXTENDED RELEASE
  2. NIFEDIPINE [Suspect]
     Dosage: TABLET, EXTENDED RELEASE
  3. ADALAT CC [Suspect]
     Dosage: TABLE, EXTENDED RELEASE
  4. PROCARDIA XL [Suspect]
     Dosage: TABLET, EXTENDED RELEASE

REACTIONS (1)
  - MEDICATION ERROR [None]
